FAERS Safety Report 6064657-4 (Version None)
Quarter: 2009Q1

REPORT INFORMATION
  Report Type: 
  Country: None (occurrence: None)
  Receive Date: 20090204
  Receipt Date: 20080411
  Transmission Date: 20090719
  Serious: No
  Sender: FDA-Public Use
  Company Number: A0715796A

PATIENT
  Age: 48 Year
  Sex: Male

DRUGS (3)
  1. ARIXTRA [Suspect]
     Indication: PULMONARY EMBOLISM
     Dosage: 7.5MG PER DAY
     Route: 058
     Dates: start: 20080311, end: 20080312
  2. PREDNISONE [Concomitant]
  3. PROTONIX [Concomitant]

REACTIONS (3)
  - NAUSEA [None]
  - PYREXIA [None]
  - VOMITING [None]
